FAERS Safety Report 16009504 (Version 2)
Quarter: 2019Q2

REPORT INFORMATION
  Report Type: Spontaneous
  Country: IT (occurrence: IT)
  Receive Date: 20190225
  Receipt Date: 20190621
  Transmission Date: 20190711
  Serious: Yes (Disabling, Other)
  Sender: FDA-Public Use
  Company Number: IT-AMGEN-ITASP2019026794

PATIENT
  Age: 59 Year
  Sex: Female

DRUGS (6)
  1. XGEVA [Suspect]
     Active Substance: DENOSUMAB
     Indication: BREAST CANCER
     Dosage: 120 MG, UNK
     Route: 058
     Dates: start: 20160101, end: 20180601
  2. CIPRALEX [Concomitant]
     Active Substance: ESCITALOPRAM OXALATE
     Dosage: UNK
  3. DELTACORTENE [Concomitant]
     Active Substance: PREDNISONE
     Dosage: UNK
  4. DEURSIL [Concomitant]
     Active Substance: URSODIOL
     Dosage: UNK
  5. AXAGON [Concomitant]
     Active Substance: ESOMEPRAZOLE
     Dosage: UNK
  6. CARDICOR [Concomitant]
     Active Substance: BISOPROLOL
     Dosage: UNK

REACTIONS (4)
  - Sequestrectomy [Unknown]
  - Bone lesion [Not Recovered/Not Resolved]
  - Neuralgia [Not Recovered/Not Resolved]
  - Osteonecrosis of jaw [Not Recovered/Not Resolved]

NARRATIVE: CASE EVENT DATE: 20170101
